FAERS Safety Report 24266315 (Version 3)
Quarter: 2024Q3

REPORT INFORMATION
  Report Type: Spontaneous
  Country: DE (occurrence: DE)
  Receive Date: 20240830
  Receipt Date: 20240926
  Transmission Date: 20241017
  Serious: Yes (Other)
  Sender: JOHNSON AND JOHNSON
  Company Number: DE-HALEON-2192797

PATIENT
  Age: 67 Year
  Sex: Male

DRUGS (10)
  1. TRAMADOL HYDROCHLORIDE [Suspect]
     Active Substance: TRAMADOL HYDROCHLORIDE
     Indication: Back pain
     Dosage: UNK
     Route: 065
  2. FENTANYL [Suspect]
     Active Substance: FENTANYL\FENTANYL CITRATE
     Indication: Pain
     Dosage: UNK
     Route: 065
  3. FENTANYL [Suspect]
     Active Substance: FENTANYL\FENTANYL CITRATE
     Indication: Back pain
  4. IBUPROFEN [Suspect]
     Active Substance: IBUPROFEN
     Indication: Back pain
     Dosage: UNK
     Route: 065
  5. LEVETIRACETAM [Suspect]
     Active Substance: LEVETIRACETAM
     Indication: Seizure prophylaxis
     Dosage: 500 MILLIGRAM, 2/DAY
     Route: 065
  6. HYDROCORTISONE [Concomitant]
     Active Substance: HYDROCORTISONE\HYDROCORTISONE ACETATE
     Indication: Product used for unknown indication
     Dosage: 25 MILLIGRAM, 1/DAY
     Route: 045
  7. LEVOTHYROXINE [Concomitant]
     Active Substance: LEVOTHYROXINE\LEVOTHYROXINE SODIUM
     Indication: Product used for unknown indication
     Dosage: 112 MICROGRAM, 1/DAY
     Route: 045
  8. TESTOSTERONE [Concomitant]
     Active Substance: TESTOSTERONE
     Indication: Product used for unknown indication
     Dosage: UNK
     Route: 062
  9. TESTOSTERONE [Concomitant]
     Active Substance: TESTOSTERONE
     Dosage: UNK
     Route: 062
  10. MINIRIN [Concomitant]
     Active Substance: DESMOPRESSIN ACETATE
     Indication: Product used for unknown indication
     Dosage: 1 DOSAGE FORM, 1/DAY
     Route: 045

REACTIONS (6)
  - Epilepsy [Recovered/Resolved]
  - Simple partial seizures [Recovered/Resolved]
  - Hyponatraemia [Recovered/Resolved]
  - Product use in unapproved indication [Unknown]
  - Intentional product misuse [Unknown]
  - Off label use [Unknown]
